FAERS Safety Report 8456814-4 (Version None)
Quarter: 2012Q2

REPORT INFORMATION
  Report Type: 
  Country: None (occurrence: None)
  Receive Date: 20120621
  Receipt Date: 20120618
  Transmission Date: 20120825
  Serious: No
  Sender: FDA-Public Use
  Company Number: US-PFIZER INC-2012147756

PATIENT
  Sex: Female
  Weight: 54.422 kg

DRUGS (1)
  1. NEURONTIN [Suspect]
     Indication: PROCEDURAL PAIN
     Dosage: TWO 100MG CAPSULES, 3X/DAY
     Route: 048
     Dates: start: 20120601, end: 20120616

REACTIONS (5)
  - DIZZINESS [None]
  - AMNESIA [None]
  - PAIN [None]
  - GAIT DISTURBANCE [None]
  - DRUG INEFFECTIVE [None]
